FAERS Safety Report 9470675 (Version 1)
Quarter: 2013Q3

REPORT INFORMATION
  Report Type: Spontaneous
  Country: US (occurrence: None)
  Receive Date: 20130820
  Receipt Date: 20130820
  Transmission Date: 20140515
  Serious: Yes (Disabling, Other)
  Sender: FDA-Public Use
  Company Number: None

PATIENT
  Age: 21 Year
  Sex: Male
  Weight: 72.58 kg

DRUGS (5)
  1. TEGRATOL [Suspect]
     Indication: MOOD SWINGS
     Route: 048
     Dates: start: 20060315, end: 20060828
  2. COLACE [Concomitant]
  3. ZANTAC [Concomitant]
  4. PRILOSEC [Concomitant]
  5. QVAR [Concomitant]

REACTIONS (1)
  - White blood cell count decreased [None]
